FAERS Safety Report 7516146-5 (Version None)
Quarter: 2011Q2

REPORT INFORMATION
  Report Type: 
  Country: None (occurrence: None)
  Receive Date: 20110601
  Receipt Date: 20110518
  Transmission Date: 20111010
  Serious: Yes (Hospitalization, Other)
  Sender: FDA-Public Use
  Company Number: GB-JNJFOC-20110503634

PATIENT
  Age: 56 Year
  Sex: Female
  Weight: 47 kg

DRUGS (3)
  1. REMICADE [Suspect]
     Indication: RHEUMATOID ARTHRITIS
     Route: 042
     Dates: start: 20020527, end: 20040214
  2. ETANERCEPT [Concomitant]
  3. METHOTREXATE [Concomitant]
     Dates: start: 20020522

REACTIONS (1)
  - BREAST CANCER [None]
